FAERS Safety Report 5512747-4 (Version None)
Quarter: 2007Q4

REPORT INFORMATION
  Report Type: 
  Country: None (occurrence: None)
  Receive Date: 20071112
  Receipt Date: 20071030
  Transmission Date: 20080405
  Serious: Yes (Hospitalization)
  Sender: FDA-Public Use
  Company Number: GB-ROCHE-496306

PATIENT
  Age: 8 Year
  Sex: Female

DRUGS (12)
  1. MYCOPHENOLATE MOFETIL [Suspect]
     Route: 048
     Dates: start: 20070327, end: 20070715
  2. FK506 [Suspect]
     Route: 048
     Dates: start: 20070327
  3. FK506 [Suspect]
     Route: 048
  4. PREDNISOLONE [Suspect]
     Indication: RENAL TRANSPLANT
     Route: 048
  5. PREDNISOLONE [Suspect]
     Route: 048
     Dates: start: 20070327
  6. GANCICLOVIR [Concomitant]
     Dates: start: 20070327
  7. ASPIRIN [Concomitant]
     Dates: start: 20070327, end: 20070617
  8. COTRIM [Concomitant]
     Dosage: DRUG REPORTED AS CO-TRIMOXAZOLE.
     Dates: start: 20070327
  9. OMEPRAZOLE [Concomitant]
     Dates: start: 20070327, end: 20070617
  10. AMLODIPINE [Concomitant]
     Dates: start: 20070417
  11. AZATHIOPRINE [Concomitant]
  12. CETRIZINE [Concomitant]

REACTIONS (3)
  - IMMUNOSUPPRESSANT DRUG LEVEL INCREASED [None]
  - URINARY TRACT INFECTION [None]
  - VIRAL INFECTION [None]
